FAERS Safety Report 5563815-2 (Version None)
Quarter: 2007Q4

REPORT INFORMATION
  Report Type: 
  Country: None (occurrence: None)
  Receive Date: 20071217
  Receipt Date: 20070827
  Transmission Date: 20080405
  Serious: No
  Sender: FDA-Public Use
  Company Number: US-ASTRAZENECA-2007UW20422

PATIENT
  Age: 74 Year
  Sex: Male
  Weight: 76.7 kg

DRUGS (4)
  1. CRESTOR [Suspect]
     Indication: HYPERCHOLESTEROLAEMIA
     Route: 048
     Dates: start: 20070601
  2. VASOTEC [Concomitant]
     Route: 048
  3. ASPIRIN [Concomitant]
     Route: 048
  4. DIURETICS [Concomitant]
     Route: 048

REACTIONS (2)
  - INFLUENZA LIKE ILLNESS [None]
  - MICTURITION URGENCY [None]
